FAERS Safety Report 25902990 (Version 1)
Quarter: 2025Q4

REPORT INFORMATION
  Report Type: Spontaneous
  Country: US (occurrence: None)
  Receive Date: 20251009
  Receipt Date: 20251009
  Transmission Date: 20260118
  Serious: Yes (Other)
  Sender: FDA-CTU
  Company Number: None

PATIENT
  Age: 73 Year
  Sex: Male

DRUGS (11)
  1. HUMIRA [Suspect]
     Active Substance: ADALIMUMAB
     Indication: Crohn^s disease
     Dosage: OTHER FREQUENCY : EVERY 2 WEEKS;?
     Route: 058
     Dates: start: 20220119
  2. ASPIRIN [Concomitant]
     Active Substance: ASPIRIN
  3. BASAGLAR [Concomitant]
     Active Substance: INSULIN GLARGINE
  4. FERROUS SULFATE [Concomitant]
     Active Substance: FERROUS SULFATE
  5. LIPITOR [Concomitant]
     Active Substance: ATORVASTATIN CALCIUM
  6. METFORMIN [Concomitant]
     Active Substance: METFORMIN HYDROCHLORIDE
  7. TAMSULOSIN [Concomitant]
     Active Substance: TAMSULOSIN
  8. VITAMIN D [Concomitant]
     Active Substance: VITAMIN D NOS
  9. EFUDEX [Concomitant]
     Active Substance: FLUOROURACIL
  10. LOSARTAN [Concomitant]
     Active Substance: LOSARTAN
  11. VITAMINS [Concomitant]
     Active Substance: VITAMINS

REACTIONS (3)
  - Change of bowel habit [None]
  - Diarrhoea [None]
  - Cholecystectomy [None]

NARRATIVE: CASE EVENT DATE: 20250913
